FAERS Safety Report 25222254 (Version 1)
Quarter: 2025Q2

REPORT INFORMATION
  Report Type: Spontaneous
  Country: PL (occurrence: PL)
  Receive Date: 20250421
  Receipt Date: 20250421
  Transmission Date: 20250716
  Serious: Yes (Other)
  Sender: NOVARTIS
  Company Number: PL-002147023-NVSC2025PL063074

PATIENT
  Age: 65 Year
  Sex: Female

DRUGS (1)
  1. RIBOCICLIB [Suspect]
     Active Substance: RIBOCICLIB
     Indication: Breast cancer
     Dosage: 600 MG, QD(21 DAYS (CYCLES REPEATED EVERY 28 DAYS))
     Route: 065
     Dates: end: 20240422

REACTIONS (3)
  - Neutropenia [Recovered/Resolved]
  - Hepatotoxicity [Unknown]
  - Pulmonary mass [Unknown]
